FAERS Safety Report 6133926-1 (Version None)
Quarter: 2009Q1

REPORT INFORMATION
  Report Type: 
  Country: None (occurrence: None)
  Receive Date: 20090326
  Receipt Date: 20090316
  Transmission Date: 20090719
  Serious: Yes (Other)
  Sender: FDA-Public Use
  Company Number: US-ELI_LILLY_AND_COMPANY-US200903004543

PATIENT
  Age: 22 Year
  Sex: Male

DRUGS (3)
  1. STRATTERA [Suspect]
     Indication: ATTENTION DEFICIT/HYPERACTIVITY DISORDER
     Dosage: 40 MG, UNKNOWN
     Route: 065
     Dates: start: 20080801
  2. STRATTERA [Suspect]
     Dosage: 80 MG, UNKNOWN
     Route: 065
     Dates: end: 20090201
  3. CELEXA [Concomitant]
     Indication: DEPRESSION
     Dosage: 15 MG, UNKNOWN
     Route: 065
     Dates: start: 20080801, end: 20090201

REACTIONS (1)
  - HEPATIC ENZYME INCREASED [None]
